FAERS Safety Report 8349635-4 (Version None)
Quarter: 2012Q2

REPORT INFORMATION
  Report Type: 
  Country: None (occurrence: None)
  Receive Date: 20120510
  Receipt Date: 20120507
  Transmission Date: 20120825
  Serious: Yes (Other)
  Sender: FDA-Public Use
  Company Number: US-PFIZER INC-2012052289

PATIENT
  Sex: Female
  Weight: 64.4 kg

DRUGS (2)
  1. DILANTIN [Suspect]
     Indication: CONVULSION
     Dosage: 100 MG, 3X/DAY
     Route: 048
     Dates: start: 20101015
  2. ZOLOFT [Concomitant]
     Indication: DEPRESSION
     Dosage: 15 MG, DAILY
     Dates: start: 20110101

REACTIONS (5)
  - BRAIN NEOPLASM [None]
  - NAUSEA [None]
  - DIABETES MELLITUS [None]
  - HYPERTENSION [None]
  - HEADACHE [None]
